FAERS Safety Report 10180309 (Version 1)
Quarter: 2014Q2

REPORT INFORMATION
  Report Type: Spontaneous
  Country: US (occurrence: US)
  Receive Date: 20140519
  Receipt Date: 20140519
  Transmission Date: 20141212
  Serious: No
  Sender: FDA-Public Use
  Company Number: US-AMGEN INC.-USASP2013081706

PATIENT
  Age: 77 Year
  Sex: Female

DRUGS (7)
  1. PROLIA [Suspect]
     Indication: OSTEOPOROSIS POSTMENOPAUSAL
     Dosage: UNK
     Route: 065
     Dates: start: 201210
  2. CALCIUM WITH VITAMIN D             /00944201/ [Concomitant]
     Dosage: 600MG/1000 IU
  3. MAGNESIUM [Concomitant]
  4. ALEVE [Concomitant]
     Dosage: AS NECESSARY/ EVERY 24 HOURS
  5. PARAFON FORTE [Concomitant]
     Indication: MUSCLE SPASMS
     Dosage: UNK UNK, AS NECESSARY
  6. VITAMINS                           /00067501/ [Concomitant]
  7. LEVOTHYROXINE [Concomitant]
     Dosage: 0.02 MG, QD

REACTIONS (2)
  - Daydreaming [Unknown]
  - Posture abnormal [Unknown]
